FAERS Safety Report 9037228 (Version 1)
Quarter: 2012Q4

REPORT INFORMATION
  Report Type: Spontaneous
  Country: US (occurrence: None)
  Receive Date: 20121211
  Receipt Date: 20121211
  Transmission Date: 20130627
  Serious: Yes (Disabling, Other)
  Sender: FDA-Public Use
  Company Number: 2012034139

PATIENT
  Age: 57 Year
  Sex: Male

DRUGS (1)
  1. IMMUNE GLOBULIN INTRAVENOUS (HUMAN) 5% SOLVENT/DETERGENT TREATED [Suspect]
     Dosage: intravenous (not otherwise specified)
     Route: 042

REACTIONS (1)
  - Retinal artery occlusion [None]
